FAERS Safety Report 6648496-9 (Version None)
Quarter: 2010Q1

REPORT INFORMATION
  Report Type: 
  Country: None (occurrence: None)
  Receive Date: 20100324
  Receipt Date: 20100317
  Transmission Date: 20100710
  Serious: Yes (Life-Threatening)
  Sender: FDA-Public Use
  Company Number: JP-ROCHE-685446

PATIENT
  Sex: Female
  Weight: 54 kg

DRUGS (14)
  1. PEGASYS [Suspect]
     Indication: HEPATITIS C
     Route: 058
     Dates: start: 20090408, end: 20091104
  2. PEGASYS [Suspect]
     Route: 058
     Dates: start: 20091022, end: 20091111
  3. COPEGUS [Suspect]
     Indication: HEPATITIS C
     Route: 048
     Dates: start: 20090408, end: 20090916
  4. COPEGUS [Suspect]
     Route: 048
     Dates: start: 20090924, end: 20090930
  5. COPEGUS [Suspect]
     Dosage: TWICE ON THE FIRST.
     Route: 048
     Dates: start: 20091007, end: 20091028
  6. PEG-INTRON [Suspect]
     Indication: HEPATITIS C
     Route: 058
     Dates: start: 20081204, end: 20090402
  7. NORVASC [Concomitant]
     Dosage: DRUG REPORTED AS AMLODIPINE BESILATE.
     Route: 048
     Dates: start: 20081002
  8. DEPAS [Concomitant]
     Route: 048
     Dates: start: 20081002
  9. LOXONIN [Concomitant]
     Dosage: DRUG REPORTED AS LOXOPROFEN SODIUM.  FREQUENCY: UNCERTAIN SINGLE USE.
     Route: 048
     Dates: start: 20081204
  10. ACINON [Concomitant]
     Route: 048
     Dates: start: 20081211
  11. SELBEX [Concomitant]
     Route: 048
     Dates: start: 20090511, end: 20091022
  12. NEO-MINOPHAGEN C [Concomitant]
     Dosage: DRUG REPORTED AS NEO-MINOPHAGEN C(GLYCYRRHIZIN_GLYCINE_CYSTEINE COMBINED DRUG)
     Route: 042
     Dates: start: 20090520
  13. MYSLEE [Concomitant]
     Dosage: DRUG REPORTED AS ZOLPIDEM TARTRATE.
     Route: 048
     Dates: start: 20090812
  14. REBETOL [Concomitant]
     Indication: HEPATITIS C
     Dates: start: 20081204, end: 20090402

REACTIONS (3)
  - BLOOD CHOLINESTERASE DECREASED [None]
  - HEPATIC ATROPHY [None]
  - LIVER DISORDER [None]
